FAERS Safety Report 19498141 (Version 1)
Quarter: 2021Q3

REPORT INFORMATION
  Report Type: Report from Study
  Country: US (occurrence: US)
  Receive Date: 20210706
  Receipt Date: 20210706
  Transmission Date: 20211014
  Serious: Yes (Other)
  Sender: FDA-Public Use
  Company Number: US-SA-2020SA280871

PATIENT
  Age: 69 Year
  Sex: Male

DRUGS (1)
  1. DUPILUMAB [Suspect]
     Active Substance: DUPILUMAB
     Indication: NASAL POLYPS
     Dosage: 300 MG, QOW
     Route: 058
     Dates: start: 20200811

REACTIONS (7)
  - Eye haemorrhage [Not Recovered/Not Resolved]
  - Eye operation [Not Recovered/Not Resolved]
  - Cataract [Not Recovered/Not Resolved]
  - Diplopia [Not Recovered/Not Resolved]
  - Product dose omission issue [Unknown]
  - Vitreous floaters [Not Recovered/Not Resolved]
  - Condition aggravated [Not Recovered/Not Resolved]

NARRATIVE: CASE EVENT DATE: 2020
